FAERS Safety Report 20329335 (Version 1)
Quarter: 2022Q1

REPORT INFORMATION
  Report Type: Spontaneous
  Country: US (occurrence: None)
  Receive Date: 20220112
  Receipt Date: 20220112
  Transmission Date: 20220423
  Serious: Yes (Disabling)
  Sender: FDA-Public Use
  Company Number: None

PATIENT
  Age: 74 Year
  Sex: Female
  Weight: 77.85 kg

DRUGS (1)
  1. LISINOPRIL AND HYDROCHLOROTHIAZIDE [Suspect]
     Active Substance: HYDROCHLOROTHIAZIDE\LISINOPRIL
     Indication: Hypertension
     Dosage: OTHER QUANTITY : 1 TABLET(S);?FREQUENCY : DAILY;?
     Route: 048
     Dates: start: 20200529, end: 20211123

REACTIONS (21)
  - Vision blurred [None]
  - Chills [None]
  - Pain [None]
  - Therapy interrupted [None]
  - Confusional state [None]
  - Dizziness [None]
  - Nausea [None]
  - Rhinorrhoea [None]
  - Sneezing [None]
  - Fatigue [None]
  - Impaired healing [None]
  - Insomnia [None]
  - Muscle spasms [None]
  - Urine abnormality [None]
  - Urine output decreased [None]
  - Eructation [None]
  - Formication [None]
  - Pruritus [None]
  - Hypoaesthesia [None]
  - Paraesthesia [None]
  - Therapy cessation [None]

NARRATIVE: CASE EVENT DATE: 20211123
